FAERS Safety Report 7826628 (Version 3)
Quarter: 2012Q4

REPORT INFORMATION
  Report Type: 
  Country: US (occurrence: US)
  Receive Date: 20110224
  Receipt Date: 20121002
  Transmission Date: 20130627
  Serious: Yes (Other)
  Sender: FDA-Public Use
  Company Number: US-ROCHE-734021

PATIENT
  Age: 34 Year
  Sex: Female
  Weight: 68 kg

DRUGS (3)
  1. ACCUTANE [Suspect]
     Indication: ACNE CYSTIC
     Route: 048
  2. ACCUTANE [Suspect]
     Route: 048
     Dates: start: 200403, end: 200409
  3. ACCUTANE [Suspect]
     Route: 048
     Dates: start: 20050101, end: 20050601

REACTIONS (12)
  - Crohn^s disease [Unknown]
  - Gastrointestinal injury [Unknown]
  - Colitis ulcerative [Unknown]
  - Haemorrhoids [Unknown]
  - Irritable bowel syndrome [Unknown]
  - Depression [Unknown]
  - Lip dry [Unknown]
  - Nasal dryness [Unknown]
  - Dry skin [Unknown]
  - Arthralgia [Unknown]
  - Back pain [Unknown]
  - Rash [Unknown]
